FAERS Safety Report 21023881 (Version 4)
Quarter: 2022Q4

REPORT INFORMATION
  Report Type: Report from Study
  Country: JP (occurrence: JP)
  Receive Date: 20220629
  Receipt Date: 20221227
  Transmission Date: 20230113
  Serious: Yes (Other)
  Sender: FDA-Public Use
  Company Number: JP-NOVARTISPH-NVSJ2022JP093044

PATIENT
  Age: 84 Year
  Sex: Female

DRUGS (30)
  1. TABRECTA [Suspect]
     Active Substance: CAPMATINIB
     Indication: Non-small cell lung cancer recurrent
     Dosage: 800 MG
     Route: 048
     Dates: start: 20210820, end: 20210903
  2. TABRECTA [Suspect]
     Active Substance: CAPMATINIB
     Dosage: 600 MG
     Route: 048
     Dates: start: 20211015, end: 20220415
  3. TABRECTA [Suspect]
     Active Substance: CAPMATINIB
     Dosage: 400 MG
     Route: 048
     Dates: start: 202204
  4. SPIRONOLACTONE [Concomitant]
     Active Substance: SPIRONOLACTONE
     Indication: Non-small cell lung cancer recurrent
     Dosage: UNK
     Route: 048
  5. VONOPRAZAN FUMARATE [Concomitant]
     Active Substance: VONOPRAZAN FUMARATE
     Indication: Non-small cell lung cancer recurrent
     Dosage: UNK
     Route: 048
  6. URAPIDIL [Concomitant]
     Active Substance: URAPIDIL
     Indication: Non-small cell lung cancer recurrent
     Dosage: UNK
     Route: 048
  7. DISTIGMINE BROMIDE [Concomitant]
     Active Substance: DISTIGMINE BROMIDE
     Indication: Non-small cell lung cancer recurrent
     Dosage: UNK
     Route: 048
  8. CARVEDILOL [Concomitant]
     Active Substance: CARVEDILOL
     Indication: Non-small cell lung cancer recurrent
     Dosage: UNK
     Route: 048
  9. MOSAPRIDE CITRATE [Concomitant]
     Active Substance: MOSAPRIDE CITRATE
     Indication: Non-small cell lung cancer recurrent
     Dosage: UNK
     Route: 048
  10. PREGABALIN [Concomitant]
     Active Substance: PREGABALIN
     Indication: Non-small cell lung cancer recurrent
     Dosage: UNK
     Route: 065
  11. FAMOTIDINE [Concomitant]
     Active Substance: FAMOTIDINE
     Indication: Non-small cell lung cancer recurrent
     Dosage: UNK
     Route: 048
  12. CODEINE PHOSPHATE [Concomitant]
     Active Substance: CODEINE PHOSPHATE
     Indication: Non-small cell lung cancer recurrent
     Dosage: UNK
     Route: 065
  13. CARBOCYSTEINE [Concomitant]
     Active Substance: CARBOCYSTEINE
     Indication: Non-small cell lung cancer recurrent
     Dosage: UNK
     Route: 048
  14. METOCLOPRAMIDE [Concomitant]
     Active Substance: METOCLOPRAMIDE
     Indication: Non-small cell lung cancer recurrent
     Dosage: UNK
     Route: 048
  15. AZOSEMIDE [Concomitant]
     Active Substance: AZOSEMIDE
     Indication: Non-small cell lung cancer recurrent
     Dosage: UNK
     Route: 048
  16. CELECOXIB [Concomitant]
     Active Substance: CELECOXIB
     Indication: Non-small cell lung cancer recurrent
     Dosage: UNK
     Route: 048
  17. AMBROXOL HYDROCHLORIDE [Concomitant]
     Active Substance: AMBROXOL HYDROCHLORIDE
     Indication: Non-small cell lung cancer recurrent
     Dosage: UNK
     Route: 048
  18. DEXTROMETHORPHAN HYDROBROMIDE [Concomitant]
     Active Substance: DEXTROMETHORPHAN HYDROBROMIDE
     Indication: Non-small cell lung cancer recurrent
     Dosage: UNK
     Route: 048
  19. CALONAL [Concomitant]
     Active Substance: ACETAMINOPHEN
     Indication: Non-small cell lung cancer recurrent
     Dosage: UNK
     Route: 048
  20. PROCATEROL HYDROCHLORIDE [Concomitant]
     Active Substance: PROCATEROL HYDROCHLORIDE
     Indication: Non-small cell lung cancer recurrent
     Dosage: UNK
     Route: 065
  21. TRAMADOL [Concomitant]
     Active Substance: TRAMADOL
     Indication: Non-small cell lung cancer recurrent
     Dosage: UNK
     Route: 048
  22. EPINASTINE HYDROCHLORIDE [Concomitant]
     Active Substance: EPINASTINE HYDROCHLORIDE
     Indication: Non-small cell lung cancer recurrent
     Dosage: UNK
     Route: 065
  23. RUPAFIN [Concomitant]
     Active Substance: RUPATADINE FUMARATE
     Indication: Non-small cell lung cancer recurrent
     Dosage: UNK
     Route: 048
  24. BELSOMRA [Concomitant]
     Active Substance: SUVOREXANT
     Indication: Non-small cell lung cancer recurrent
     Dosage: UNK
     Route: 048
  25. AMBROXOL HYDROCHLORIDE [Concomitant]
     Active Substance: AMBROXOL HYDROCHLORIDE
     Indication: Non-small cell lung cancer recurrent
     Dosage: UNK
     Route: 065
  26. HERBALS [Concomitant]
     Active Substance: HERBALS
     Indication: Non-small cell lung cancer recurrent
     Dosage: UNK
     Route: 065
  27. HERBALS [Concomitant]
     Active Substance: HERBALS
     Indication: Non-small cell lung cancer recurrent
     Dosage: UNK
     Route: 065
  28. HERBALS [Concomitant]
     Active Substance: HERBALS
     Indication: Non-small cell lung cancer recurrent
     Dosage: UNK
     Route: 065
  29. NINJINTO [Concomitant]
     Indication: Non-small cell lung cancer recurrent
     Dosage: UNK
     Route: 065
  30. LEVOFLOXACIN [Concomitant]
     Active Substance: LEVOFLOXACIN
     Indication: Non-small cell lung cancer recurrent
     Dosage: UNK
     Route: 048

REACTIONS (10)
  - Embolism venous [Unknown]
  - Non-small cell lung cancer recurrent [Unknown]
  - Malignant neoplasm progression [Unknown]
  - Face oedema [Recovering/Resolving]
  - Oedema peripheral [Recovering/Resolving]
  - Blood creatinine increased [Unknown]
  - Nausea [Recovered/Resolved]
  - Decreased immune responsiveness [Unknown]
  - Decreased appetite [Recovering/Resolving]
  - Bacteriuria [Recovering/Resolving]

NARRATIVE: CASE EVENT DATE: 20210824
